FAERS Safety Report 7892411-7 (Version None)
Quarter: 2011Q4

REPORT INFORMATION
  Report Type: 
  Country: None (occurrence: None)
  Receive Date: 20111104
  Receipt Date: 20111025
  Transmission Date: 20120403
  Serious: Yes (Other)
  Sender: FDA-Public Use
  Company Number: US-JNJFOC-20111012895

PATIENT
  Age: 84 Year
  Sex: Male

DRUGS (20)
  1. BUPROPION HCL [Interacting]
     Route: 065
  2. NITROGLYCERIN [Concomitant]
     Dosage: 1 TAB AS  NEEDED
     Route: 060
  3. MIRTAZAPINE [Interacting]
     Indication: PRODUCT USED FOR UNKNOWN INDICATION
     Route: 065
  4. ALLOPURINOL [Concomitant]
     Route: 065
  5. ATENOLOL [Concomitant]
     Route: 065
  6. BUPROPION HCL [Interacting]
     Indication: PRODUCT USED FOR UNKNOWN INDICATION
     Route: 065
  7. PRAVASTATIN [Concomitant]
     Route: 065
  8. ASPIRIN [Concomitant]
     Route: 065
  9. LIDOCAINE [Concomitant]
     Route: 061
  10. DONEPEZIL HCL [Interacting]
     Indication: PRODUCT USED FOR UNKNOWN INDICATION
     Route: 065
  11. DONEPEZIL HCL [Interacting]
     Route: 065
  12. GABAPENTIN [Concomitant]
     Route: 065
  13. LISINOPRIL [Concomitant]
     Route: 065
  14. RISPERIDONE [Suspect]
     Indication: AGITATION
     Route: 065
  15. BUPROPION HCL [Interacting]
     Route: 065
  16. MIRTAZAPINE [Interacting]
     Route: 065
  17. OMEPRAZOLE [Concomitant]
     Route: 065
  18. ACETAMINOPHEN [Concomitant]
     Dosage: AS NEEDED
  19. BUPROPION HCL [Interacting]
     Route: 065
  20. HYDROCHLOROTHIAZIDE [Concomitant]
     Route: 065

REACTIONS (4)
  - HALLUCINATION, VISUAL [None]
  - DRUG INEFFECTIVE [None]
  - DRUG INTERACTION [None]
  - DELUSION [None]
